FAERS Safety Report 6863309-8 (Version None)
Quarter: 2010Q3

REPORT INFORMATION
  Report Type: 
  Country: None (occurrence: None)
  Receive Date: 20100721
  Receipt Date: 20100713
  Transmission Date: 20110219
  Serious: Yes (Other)
  Sender: FDA-Public Use
  Company Number: US-WYE-H16182310

PATIENT
  Sex: Female
  Weight: 62.65 kg

DRUGS (11)
  1. RAPAMUNE [Suspect]
     Indication: TUBEROUS SCLEROSIS
     Dates: start: 20080301, end: 20090501
  2. RAPAMUNE [Suspect]
     Indication: ANGIOMYOLIPOMA
     Dates: start: 20090501, end: 20090101
  3. RAPAMUNE [Suspect]
     Indication: ASTROCYTOMA
  4. CARBATROL [Concomitant]
  5. FLUOXETINE [Concomitant]
  6. IBUPROFEN [Concomitant]
     Dosage: DOSE NOT PROVIDED, TAKEN AS NEEDED
  7. ZOLOFT [Concomitant]
  8. LORATADINE [Concomitant]
  9. ACETAMINOPHEN [Concomitant]
     Dosage: DOSE NOT PROVIDED, TAKEN AS NEEDED
  10. KEPPRA [Concomitant]
  11. FOLIC ACID [Concomitant]

REACTIONS (4)
  - DISEASE PROGRESSION [None]
  - DRUG DOSE OMISSION [None]
  - THERAPEUTIC RESPONSE UNEXPECTED [None]
  - TUBEROUS SCLEROSIS [None]
